FAERS Safety Report 4458850-1 (Version None)
Quarter: 2004Q3

REPORT INFORMATION
  Report Type: 
  Country: None (occurrence: None)
  Receive Date: 20040922
  Receipt Date: 20040922
  Transmission Date: 20050211
  Serious: Yes (Other)
  Sender: FDA-Public Use
  Company Number: None

PATIENT
  Sex: Female
  Weight: 59.8748 kg

DRUGS (2)
  1. PROPOXYPHENE - APAP 100-650 [Suspect]
     Indication: OSTEOARTHRITIS
     Dosage: PO TID
     Route: 048
  2. PROPOXYPHENE - APAP 100-650 [Suspect]
     Indication: SPINAL COLUMN STENOSIS
     Dosage: PO TID
     Route: 048

REACTIONS (4)
  - ARTHRALGIA [None]
  - NAUSEA [None]
  - PAIN IN EXTREMITY [None]
  - PHARMACEUTICAL PRODUCT COMPLAINT [None]
